FAERS Safety Report 17838549 (Version 2)
Quarter: 2020Q2

REPORT INFORMATION
  Report Type: Spontaneous
  Country: GB (occurrence: GB)
  Receive Date: 20200529
  Receipt Date: 20200601
  Transmission Date: 20200714
  Serious: Yes (Other)
  Sender: FDA-Public Use
  Company Number: GB-TEVA-2020-GB-1240891

PATIENT
  Age: 31 Year
  Sex: Male

DRUGS (2)
  1. FINASTERIDE. [Suspect]
     Active Substance: FINASTERIDE
     Indication: ALOPECIA
     Dosage: 1 MG
     Route: 048
  2. MINOXIDIL. [Concomitant]
     Active Substance: MINOXIDIL

REACTIONS (6)
  - Loss of libido [Not Recovered/Not Resolved]
  - Sex hormone binding globulin increased [Not Recovered/Not Resolved]
  - Erectile dysfunction [Not Recovered/Not Resolved]
  - Product substitution issue [Unknown]
  - Product storage error [Unknown]
  - Ejaculation failure [Not Recovered/Not Resolved]
